FAERS Safety Report 17758208 (Version 1)
Quarter: 2020Q2

REPORT INFORMATION
  Report Type: Spontaneous
  Country: US (occurrence: US)
  Receive Date: 20200507
  Receipt Date: 20200507
  Transmission Date: 20200714
  Serious: No
  Sender: FDA-Public Use
  Company Number: US-BAYER-2020-066582

PATIENT

DRUGS (3)
  1. BRACE [CEFRADINE] [Concomitant]
  2. ORTHOGEL ADVANCED PAIN RELIEF [Concomitant]
  3. ALEVE [Suspect]
     Active Substance: NAPROXEN SODIUM
     Dosage: UNK

REACTIONS (1)
  - Joint swelling [Unknown]
